FAERS Safety Report 11057229 (Version 3)
Quarter: 2015Q2

REPORT INFORMATION
  Report Type: Report from Study
  Country: US (occurrence: US)
  Receive Date: 20150422
  Receipt Date: 20150514
  Transmission Date: 20150821
  Serious: No
  Sender: FDA-Public Use
  Company Number: US-MYLANLABS-2015M1012387

PATIENT
  Age: 17 Year
  Sex: Female

DRUGS (1)
  1. AMNESTEEM [Suspect]
     Active Substance: ISOTRETINOIN
     Dosage: 40 MG, BID
     Dates: start: 20150102, end: 20150409

REACTIONS (1)
  - Pregnancy test false positive [Recovered/Resolved]

NARRATIVE: CASE EVENT DATE: 20150408
